FAERS Safety Report 6901629-9 (Version None)
Quarter: 2010Q3

REPORT INFORMATION
  Report Type: 
  Country: None (occurrence: None)
  Receive Date: 20100803
  Receipt Date: 20080325
  Transmission Date: 20110219
  Serious: No
  Sender: FDA-Public Use
  Company Number: US-PFIZER INC-2008019472

PATIENT
  Sex: Female

DRUGS (2)
  1. LYRICA [Suspect]
  2. EFFEXOR [Interacting]

REACTIONS (4)
  - DRUG EFFECT DECREASED [None]
  - DRUG INTERACTION [None]
  - FATIGUE [None]
  - SOMNOLENCE [None]
